FAERS Safety Report 5902079-4 (Version None)
Quarter: 2008Q3

REPORT INFORMATION
  Report Type: 
  Country: None (occurrence: None)
  Receive Date: 20080919
  Receipt Date: 20080806
  Transmission Date: 20090109
  Serious: No
  Sender: FDA-Public Use
  Company Number: US-WYE-H05424508

PATIENT
  Age: 49 Year
  Sex: Male
  Weight: 71.28 kg

DRUGS (3)
  1. PRISTIQ [Suspect]
     Indication: DEPRESSION
     Dosage: 50 MG 1X PER 2 DAY, ORAL
     Route: 048
     Dates: start: 20080730
  2. EFFEXOR XR [Suspect]
     Indication: DEPRESSION
     Dosage: 37.5 MG 1X PER 2 DAY, ORAL
     Route: 048
  3. LISINOPRIL [Concomitant]

REACTIONS (1)
  - ANXIETY [None]
